FAERS Safety Report 16745879 (Version 5)
Quarter: 2020Q2

REPORT INFORMATION
  Report Type: Report from Study
  Country: US (occurrence: US)
  Receive Date: 20190827
  Receipt Date: 20200623
  Transmission Date: 20200713
  Serious: Yes (Hospitalization)
  Sender: FDA-Public Use
  Company Number: PHHY2018US014608

PATIENT
  Age: 64 Year
  Sex: Female
  Weight: 64.1 kg

DRUGS (6)
  1. LAMPRENE [Suspect]
     Active Substance: CLOFAZIMINE
     Dosage: UNK
     Route: 048
     Dates: start: 20190205
  2. LAMPRENE [Suspect]
     Active Substance: CLOFAZIMINE
     Dosage: UNK
     Route: 048
     Dates: start: 20171114, end: 20180202
  3. LAMPRENE [Suspect]
     Active Substance: CLOFAZIMINE
     Dosage: UNK
     Route: 065
     Dates: start: 20200317
  4. LAMPRENE [Suspect]
     Active Substance: CLOFAZIMINE
     Indication: MYCOBACTERIAL INFECTION
     Dosage: 100 MG, QD
     Route: 048
     Dates: start: 20170621
  5. CEFOXITIN [Concomitant]
     Active Substance: CEFOXITIN SODIUM
     Indication: PRODUCT USED FOR UNKNOWN INDICATION
     Route: 065
  6. LAMPRENE [Suspect]
     Active Substance: CLOFAZIMINE
     Dosage: 50 MG, QD
     Route: 065
     Dates: start: 20200515

REACTIONS (9)
  - Skin discolouration [Not Recovered/Not Resolved]
  - Mycobacterial infection [Recovered/Resolved]
  - Skin discolouration [Recovered/Resolved]
  - Liver function test abnormal [Recovered/Resolved]
  - Anaemia [Not Recovered/Not Resolved]
  - Culture positive [Not Recovered/Not Resolved]
  - Rash [Recovered/Resolved]
  - Alopecia [Recovering/Resolving]
  - Pruritus [Recovered/Resolved]

NARRATIVE: CASE EVENT DATE: 20170725
